FAERS Safety Report 21424336 (Version 2)
Quarter: 2022Q4

REPORT INFORMATION
  Report Type: Spontaneous
  Country: US (occurrence: US)
  Receive Date: 20221007
  Receipt Date: 20221104
  Transmission Date: 20230113
  Serious: No
  Sender: FDA-Public Use
  Company Number: US-BRISTOL-MYERS SQUIBB COMPANY-2022-116742

PATIENT
  Age: 87 Year
  Sex: Female

DRUGS (2)
  1. REVLIMID [Suspect]
     Active Substance: LENALIDOMIDE
     Indication: Plasma cell myeloma
     Dosage: 1 CAPSULE BY MOUTH EVERY DAY FOR 21 DAYS OUT OF A 28 DAY CYCLE
     Route: 048
  2. REVLIMID [Suspect]
     Active Substance: LENALIDOMIDE
     Dosage: 1 CAPSULE BY MOUTH EVERY DAY FOR 21 DAYS OUT OF A 28 DAY CYCLE
     Route: 048

REACTIONS (3)
  - Arthritis [Unknown]
  - Acne [Not Recovered/Not Resolved]
  - Neuroma [Unknown]
